FAERS Safety Report 21764393 (Version 1)
Quarter: 2022Q4

REPORT INFORMATION
  Report Type: Spontaneous
  Country: US (occurrence: US)
  Receive Date: 20221222
  Receipt Date: 20221222
  Transmission Date: 20230112
  Serious: No
  Sender: FDA-Public Use
  Company Number: US-BRISTOL-MYERS SQUIBB COMPANY-2022-157168

PATIENT
  Age: 66 Year
  Sex: Male
  Weight: 78.47 kg

DRUGS (1)
  1. POMALYST [Suspect]
     Active Substance: POMALIDOMIDE
     Indication: Plasma cell myeloma
     Dosage: FREQ: 3WKON/1WKOFF
     Route: 048
     Dates: start: 20210701, end: 20221201

REACTIONS (1)
  - Bronchitis [Not Recovered/Not Resolved]
